FAERS Safety Report 4532107-2 (Version None)
Quarter: 2004Q4

REPORT INFORMATION
  Report Type: 
  Country: None (occurrence: None)
  Receive Date: 20041217
  Receipt Date: 20041209
  Transmission Date: 20050328
  Serious: Yes (Hospitalization)
  Sender: FDA-Public Use
  Company Number: 2004-04-0520

PATIENT
  Age: 84 Year
  Sex: Male

DRUGS (7)
  1. FLUTAMIDE [Suspect]
     Indication: PROSTATE CANCER
     Dosage: 250 MG ORAL
     Route: 048
     Dates: start: 20010209
  2. LEUPROLIDE ACETATE [Suspect]
     Indication: PROSTATE CANCER
     Dosage: 11.25-3.75 MG SUBCUTANEO
     Route: 058
     Dates: start: 20010209, end: 20040202
  3. AMLODIPINE BESILATE ORALS [Suspect]
     Indication: HYPERTENSION
     Dosage: 2.5 MG/DAY ORAL
     Route: 048
     Dates: start: 20010309, end: 20040220
  4. VOGLIBOSE ORALS [Suspect]
     Indication: DIABETES MELLITUS
     Dosage: 0.9-0.6MG QD ORAL
     Route: 048
     Dates: start: 20010424, end: 20040220
  5. DISTIGMINE BROMIDE [Concomitant]
  6. CIPROFLOXACIN HYDROCHLORIDE [Concomitant]
  7. TAMSULOSIN [Concomitant]

REACTIONS (2)
  - ACUTE MYOCARDIAL INFARCTION [None]
  - PLEURAL EFFUSION [None]
